FAERS Safety Report 8798465 (Version 1)
Quarter: 2012Q4

REPORT INFORMATION
  Report Type: 
  Country: US (occurrence: US)
  Receive Date: 20120920
  Receipt Date: 20120920
  Transmission Date: 20130627
  Serious: Yes (Disabling, Other)
  Sender: FDA-Public Use
  Company Number: US-PFIZER INC-2012231697

PATIENT
  Age: 55 Year
  Sex: Female
  Weight: 63.49 kg

DRUGS (2)
  1. EFFEXOR XR [Suspect]
     Indication: DEPRESSION
     Dosage: 75 mg, 2x/day
     Route: 048
     Dates: end: 2012
  2. EFFEXOR XR [Suspect]
     Dosage: 75 mg, 1x/day
     Route: 048
     Dates: start: 2012

REACTIONS (8)
  - Inappropriate schedule of drug administration [Unknown]
  - Depression [Unknown]
  - Cardiac disorder [Unknown]
  - Hypertension [Unknown]
  - Convulsion [Unknown]
  - Gastrooesophageal reflux disease [Unknown]
  - Intentional drug misuse [Not Recovered/Not Resolved]
  - Paraesthesia [Not Recovered/Not Resolved]
